FAERS Safety Report 15126157 (Version 1)
Quarter: 2018Q3

REPORT INFORMATION
  Report Type: Spontaneous
  Country: US (occurrence: US)
  Receive Date: 20180710
  Receipt Date: 20180710
  Transmission Date: 20181010
  Serious: Yes (Hospitalization)
  Sender: FDA-Public Use
  Company Number: US-OTSUKA-2018_018644

PATIENT
  Sex: Female

DRUGS (4)
  1. ABILIFY [Suspect]
     Active Substance: ARIPIPRAZOLE
     Indication: BIPOLAR DISORDER
     Dosage: 30 MG, QD
     Route: 065
     Dates: end: 2015
  2. ABILIFY [Suspect]
     Active Substance: ARIPIPRAZOLE
     Indication: ANXIETY
  3. ABILIFY [Suspect]
     Active Substance: ARIPIPRAZOLE
     Indication: PSYCHOTIC DISORDER
  4. ABILIFY [Suspect]
     Active Substance: ARIPIPRAZOLE
     Indication: MAJOR DEPRESSION
     Dosage: 5 MG, QD
     Route: 065
     Dates: start: 2011

REACTIONS (9)
  - Product use in unapproved indication [Unknown]
  - Eating disorder [Not Recovered/Not Resolved]
  - Mental disorder [Unknown]
  - Economic problem [Unknown]
  - Compulsive sexual behaviour [Not Recovered/Not Resolved]
  - Weight increased [Unknown]
  - Diabetes mellitus [Unknown]
  - Gambling disorder [Not Recovered/Not Resolved]
  - Compulsive hoarding [Not Recovered/Not Resolved]
